FAERS Safety Report 5471761-8 (Version None)
Quarter: 2007Q3

REPORT INFORMATION
  Report Type: 
  Country: None (occurrence: None)
  Receive Date: 20070928
  Receipt Date: 20070510
  Transmission Date: 20080115
  Serious: No
  Sender: FDA-Public Use
  Company Number: US-BRISTOL-MYERS SQUIBB COMPANY-13775408

PATIENT
  Sex: Male
  Weight: 100 kg

DRUGS (1)
  1. DEFINITY [Suspect]

REACTIONS (2)
  - GROIN PAIN [None]
  - INFUSION RELATED REACTION [None]
